FAERS Safety Report 6398584-X (Version None)
Quarter: 2009Q4

REPORT INFORMATION
  Report Type: 
  Country: None (occurrence: None)
  Receive Date: 20091007
  Receipt Date: 20090929
  Transmission Date: 20100525
  Serious: Yes (Other)
  Sender: FDA-Public Use
  Company Number: ADR33842009

PATIENT
  Age: 80 Year
  Sex: Male

DRUGS (6)
  1. LAMOTRIGINE [Suspect]
     Indication: EPILEPSY
     Dosage: 75 MG - 1/1 DAY; ORAL
     Route: 048
     Dates: start: 20090601
  2. WARFARIN SODIUM [Concomitant]
  3. AMLODIPINE [Concomitant]
  4. BISOPROLOL [Concomitant]
  5. FRUSEMIDE [Concomitant]
  6. SIMVASTATIN [Concomitant]

REACTIONS (2)
  - DRUG INTERACTION [None]
  - INTERNATIONAL NORMALISED RATIO DECREASED [None]
